FAERS Safety Report 13158568 (Version 4)
Quarter: 2017Q1

REPORT INFORMATION
  Report Type: Spontaneous
  Country: US (occurrence: US)
  Receive Date: 20170127
  Receipt Date: 20170323
  Transmission Date: 20170428
  Serious: Yes (Other)
  Sender: FDA-Public Use
  Company Number: US-BAYER-2017-016255

PATIENT
  Age: 30 Year
  Sex: Female
  Weight: 64.4 kg

DRUGS (1)
  1. SKYLA [Suspect]
     Active Substance: LEVONORGESTREL
     Indication: CONTRACEPTION
     Dosage: 14 MCG/24HR, CONT
     Route: 015
     Dates: start: 20141120, end: 20161216

REACTIONS (4)
  - Ectopic pregnancy with contraceptive device [None]
  - Abdominal tenderness [None]
  - Drug ineffective [None]
  - Abdominal pain lower [None]

NARRATIVE: CASE EVENT DATE: 2016
